FAERS Safety Report 18393971 (Version 1)
Quarter: 2020Q4

REPORT INFORMATION
  Report Type: Spontaneous
  Country: US (occurrence: US)
  Receive Date: 20201016
  Receipt Date: 20201016
  Transmission Date: 20210114
  Serious: No
  Sender: FDA-Public Use
  Company Number: US-ASTRAZENECA-2020SF27269

PATIENT
  Sex: Male

DRUGS (1)
  1. FARXIGA [Suspect]
     Active Substance: DAPAGLIFLOZIN PROPANEDIOL
     Dosage: DOSE UNKNOWN
     Route: 048

REACTIONS (4)
  - Insomnia [Unknown]
  - Hyperhidrosis [Unknown]
  - Depressed mood [Unknown]
  - Fatigue [Unknown]
